FAERS Safety Report 6587160-1 (Version None)
Quarter: 2010Q1

REPORT INFORMATION
  Report Type: 
  Country: None (occurrence: None)
  Receive Date: 20100217
  Receipt Date: 20090427
  Transmission Date: 20100710
  Serious: Yes (Other)
  Sender: FDA-Public Use
  Company Number: US-ALLERGAN-0905819US

PATIENT
  Sex: Female
  Weight: 99.773 kg

DRUGS (2)
  1. BOTOX [Suspect]
     Indication: TOURETTE'S DISORDER
     Dosage: UNK, SINGLE
     Route: 030
     Dates: start: 20080801, end: 20080801
  2. BOTOX [Suspect]
     Indication: TIC

REACTIONS (1)
  - LYMPHADENITIS [None]
